FAERS Safety Report 10516993 (Version 6)
Quarter: 2015Q4

REPORT INFORMATION
  Report Type: Report from Study
  Country: JP (occurrence: JP)
  Receive Date: 20141014
  Receipt Date: 20151222
  Transmission Date: 20160304
  Serious: Yes (Death, Hospitalization)
  Sender: FDA-Public Use
  Company Number: JP-PFIZER INC-2014276390

PATIENT
  Age: 73 Year
  Sex: Female

DRUGS (3)
  1. TYGACIL [Suspect]
     Active Substance: TIGECYCLINE
     Indication: INFECTION
     Dosage: 50 MG, 2X/DAY
     Route: 041
     Dates: start: 20131020, end: 20131023
  2. TYGACIL [Suspect]
     Active Substance: TIGECYCLINE
     Indication: SEPSIS
  3. PRODIF [Concomitant]
     Active Substance: FOSFLUCONAZOLE
     Indication: FUNGAL INFECTION
     Dosage: 400 MG, 1X/DAY
     Route: 042
     Dates: start: 20131008, end: 20131104

REACTIONS (5)
  - Disease progression [Fatal]
  - Hepatic enzyme increased [Recovered/Resolved]
  - Cytopenia [Recovered/Resolved]
  - Sepsis [Fatal]
  - Renal failure [Not Recovered/Not Resolved]

NARRATIVE: CASE EVENT DATE: 20131021
